FAERS Safety Report 9087065 (Version 1)
Quarter: 2013Q1

REPORT INFORMATION
  Report Type: Report from Study
  Country: US (occurrence: US)
  Receive Date: 20130130
  Receipt Date: 20130130
  Transmission Date: 20140127
  Serious: No
  Sender: FDA-Public Use
  Company Number: US-ABBOTT-12P-163-0980533-00

PATIENT
  Sex: Male
  Weight: 54.48 kg

DRUGS (3)
  1. HUMIRA [Suspect]
     Indication: BEHCET^S SYNDROME
     Dates: start: 201209
  2. PREDNISONE [Concomitant]
     Indication: BEHCET^S SYNDROME
  3. PRED FORTE [Concomitant]
     Indication: BEHCET^S SYNDROME
     Route: 047

REACTIONS (1)
  - Off label use [Not Recovered/Not Resolved]
